FAERS Safety Report 7306658-1 (Version None)
Quarter: 2011Q1

REPORT INFORMATION
  Report Type: 
  Country: None (occurrence: None)
  Receive Date: 20110222
  Receipt Date: 20110214
  Transmission Date: 20110831
  Serious: Yes (Hospitalization)
  Sender: FDA-Public Use
  Company Number: NL-MEDIMMUNE-MEDI-0012673

PATIENT
  Sex: Female
  Weight: 5.03 kg

DRUGS (2)
  1. SYNAGIS [Suspect]
     Route: 030
     Dates: start: 20101025, end: 20101220
  2. SYNAGIS [Suspect]
     Route: 030
     Dates: start: 20110117, end: 20110117

REACTIONS (2)
  - PYREXIA [None]
  - HYPOVENTILATION [None]
